FAERS Safety Report 5474920-3 (Version None)
Quarter: 2007Q3

REPORT INFORMATION
  Report Type: 
  Country: None (occurrence: None)
  Receive Date: 20070831
  Receipt Date: 20070507
  Transmission Date: 20080115
  Serious: No
  Sender: FDA-Public Use
  Company Number: 241098

PATIENT
  Age: 76 Year
  Sex: Female

DRUGS (4)
  1. LUCENTIS [Suspect]
     Indication: MACULAR DEGENERATION
     Dosage: 1/MONTH, INTRAVITREAL
     Dates: start: 20061001
  2. PREVACID [Concomitant]
  3. OCUVITE (ASCORBIC ACID, BETA CAROTENE, COPPER NOS, LUTEIN, SELENIUM NO [Concomitant]
  4. CALCIUM GLUCONATE [Concomitant]

REACTIONS (2)
  - GASTRITIS [None]
  - HEADACHE [None]
